FAERS Safety Report 8289242-5 (Version None)
Quarter: 2012Q2

REPORT INFORMATION
  Report Type: 
  Country: None (occurrence: None)
  Receive Date: 20120417
  Receipt Date: 20120411
  Transmission Date: 20120825
  Serious: Yes (Other)
  Sender: FDA-Public Use
  Company Number: PHHY2012BR031357

PATIENT
  Sex: Female

DRUGS (1)
  1. RASILEZ AMLO [Suspect]

REACTIONS (4)
  - ERYSIPELAS [None]
  - SKIN CANCER [None]
  - INJURY [None]
  - OEDEMA PERIPHERAL [None]
